FAERS Safety Report 16807695 (Version 3)
Quarter: 2019Q4

REPORT INFORMATION
  Report Type: Spontaneous
  Country: LB (occurrence: LB)
  Receive Date: 20190914
  Receipt Date: 20191115
  Transmission Date: 20200122
  Serious: Yes (Hospitalization)
  Sender: FDA-Public Use
  Company Number: LB-CELGENEUS-LBN-20190902665

PATIENT
  Age: 75 Year
  Sex: Male

DRUGS (14)
  1. OTEZLA [Suspect]
     Active Substance: APREMILAST
     Indication: PSORIASIS
     Dosage: 30 MILLIGRAM
     Route: 048
     Dates: start: 201906, end: 201908
  2. AMAYL [Concomitant]
     Indication: DIABETES MELLITUS
     Dosage: 4 MILLIGRAM
     Route: 048
     Dates: start: 2016
  3. LIPITOR [Concomitant]
     Active Substance: ATORVASTATIN CALCIUM
     Indication: HYPERCHOLESTEROLAEMIA
     Dosage: 40 MILLIGRAM
     Route: 048
     Dates: start: 2004
  4. COLCHICINE. [Concomitant]
     Active Substance: COLCHICINE
     Indication: HYPERURICAEMIA
     Dosage: 1 MILLIGRAM
     Route: 048
     Dates: start: 2017
  5. MICARDIS [Concomitant]
     Active Substance: TELMISARTAN
     Indication: HYPOTENSION
     Dosage: 80/12.5
     Route: 048
     Dates: start: 2004
  6. APO ISDIN [Concomitant]
     Indication: VASODILATATION
     Route: 048
  7. ZYROLIC [Concomitant]
     Indication: HYPERURICAEMIA
     Dosage: 300 MILLIGRAM
     Route: 048
     Dates: start: 2011
  8. PRIOTIC [Concomitant]
     Indication: HYPERTENSION
     Route: 048
  9. INDERAL [Concomitant]
     Active Substance: PROPRANOLOL HYDROCHLORIDE
     Indication: MUSCULAR WEAKNESS
     Dosage: 120 MILLIGRAM
     Route: 048
     Dates: start: 2009
  10. GLUCOPHAGE [Concomitant]
     Active Substance: METFORMIN HYDROCHLORIDE
     Indication: DIABETES MELLITUS
     Route: 048
     Dates: start: 2004
  11. AERIUS [Concomitant]
     Indication: ALLERGIC COUGH
     Dosage: 10 MILLIGRAM
     Route: 048
     Dates: start: 2004
  12. PROSTAFINE [Concomitant]
     Indication: BENIGN PROSTATIC HYPERPLASIA
     Route: 048
  13. PARIET [Concomitant]
     Active Substance: RABEPRAZOLE SODIUM
     Indication: GASTRITIS PROPHYLAXIS
     Dosage: 20 MILLIGRAM
     Route: 048
     Dates: start: 2012
  14. PLAVIX [Concomitant]
     Active Substance: CLOPIDOGREL BISULFATE
     Indication: PROPHYLAXIS
     Dosage: 75 MILLIGRAM
     Route: 048

REACTIONS (1)
  - Interstitial lung disease [Recovering/Resolving]

NARRATIVE: CASE EVENT DATE: 20190820
